FAERS Safety Report 17167647 (Version 1)
Quarter: 2019Q4

REPORT INFORMATION
  Report Type: Spontaneous
  Country: FR (occurrence: FR)
  Receive Date: 20191218
  Receipt Date: 20191218
  Transmission Date: 20200122
  Serious: Yes (Hospitalization, Other)
  Sender: FDA-Public Use
  Company Number: FR-AUROBINDO-AUR-APL-2019-104213

PATIENT
  Age: 55 Year
  Sex: Male
  Weight: 90 kg

DRUGS (4)
  1. PANTOPRAZOLE SODIUM. [Suspect]
     Active Substance: PANTOPRAZOLE SODIUM
     Indication: UPPER GASTROINTESTINAL HAEMORRHAGE
     Dosage: 200 MILLIGRAM, ONCE A DAY
     Route: 042
     Dates: start: 20191112, end: 20191122
  2. KABIVEN [Suspect]
     Active Substance: AMINO ACIDS\ANHYDROUS DEXTROSE\CALCIUM CHLORIDE\MAGNESIUM SULFATE HEPTAHYDRATE\POTASSIUM CHLORIDE\SODIUM ACETATE\SODIUM GLYCEROPHOSPHATE ANHYDROUS\SOYBEAN OIL
     Indication: PARENTERAL NUTRITION
     Dosage: 1 LITER, ONCE A DAY
     Route: 041
     Dates: start: 20191114, end: 20191118
  3. CALCIPARINE [Suspect]
     Active Substance: HEPARIN CALCIUM
     Indication: THROMBOSIS PROPHYLAXIS
     Dosage: 0.2 MILLILITER, ONCE A DAY
     Route: 058
     Dates: start: 20191114
  4. ERYTHROCINE [Suspect]
     Active Substance: ERYTHROMYCIN
     Indication: IMPAIRED GASTRIC EMPTYING
     Dosage: 250 MILLIGRAM 1 TOTAL
     Route: 042
     Dates: start: 20191115, end: 20191115

REACTIONS (1)
  - Cholestasis [Not Recovered/Not Resolved]

NARRATIVE: CASE EVENT DATE: 20191120
